FAERS Safety Report 18411383 (Version 1)
Quarter: 2020Q4

REPORT INFORMATION
  Report Type: Spontaneous
  Country: US (occurrence: US)
  Receive Date: 20201021
  Receipt Date: 20201021
  Transmission Date: 20210114
  Serious: Yes (Death, Hospitalization)
  Sender: FDA-Public Use
  Company Number: US-JNJFOC-20201031701

PATIENT

DRUGS (1)
  1. DIPHENHYDRAMINE HYDROCHLORIDE. [Suspect]
     Active Substance: DIPHENHYDRAMINE HYDROCHLORIDE
     Indication: PRODUCT USED FOR UNKNOWN INDICATION
     Route: 065

REACTIONS (22)
  - Cardiac arrest [Fatal]
  - Bradycardia [Fatal]
  - Coma [Fatal]
  - Acidosis [Fatal]
  - Toxicity to various agents [Fatal]
  - Aspartate aminotransferase increased [Fatal]
  - Renal failure [Fatal]
  - Haematemesis [Fatal]
  - Blood creatine phosphokinase increased [Fatal]
  - Haemorrhage intracranial [Fatal]
  - Oliguria [Fatal]
  - Tachycardia [Fatal]
  - Haemorrhage [Fatal]
  - Blood creatinine increased [Fatal]
  - Hypotension [Fatal]
  - Hypothermia [Fatal]
  - Anuria [Fatal]
  - Alanine aminotransferase increased [Fatal]
  - Conduction disorder [Fatal]
  - Arrhythmia [Fatal]
  - Pyrexia [Fatal]
  - Respiratory arrest [Fatal]
